FAERS Safety Report 7091985-6 (Version None)
Quarter: 2010Q4

REPORT INFORMATION
  Report Type: 
  Country: None (occurrence: None)
  Receive Date: 20101109
  Receipt Date: 20101102
  Transmission Date: 20110411
  Serious: Yes (Hospitalization)
  Sender: FDA-Public Use
  Company Number: US-BAXTER-2010BH027072

PATIENT
  Age: 74 Year
  Sex: Female

DRUGS (1)
  1. DIANEAL [Suspect]
     Indication: PERITONEAL DIALYSIS
     Route: 033

REACTIONS (5)
  - BURNS SECOND DEGREE [None]
  - BURNS THIRD DEGREE [None]
  - DEVICE RELATED INFECTION [None]
  - GASTROINTESTINAL HAEMORRHAGE [None]
  - PSEUDOMONAS TEST POSITIVE [None]
